FAERS Safety Report 5213109-X (Version None)
Quarter: 2007Q1

REPORT INFORMATION
  Report Type: 
  Country: None (occurrence: None)
  Receive Date: 20070112
  Receipt Date: 20070104
  Transmission Date: 20070707
  Serious: Yes (Death)
  Sender: FDA-Public Use
  Company Number: 2007301568

PATIENT
  Age: 20 Year
  Sex: Female

DRUGS (2)
  1. BENADRYL [Suspect]
     Indication: INSOMNIA
     Dosage: 2 ULTRATABS ONCE, ORAL
     Route: 048
     Dates: start: 20061209, end: 20061209
  2. VICODIN [Suspect]
     Indication: PAIN

REACTIONS (1)
  - MALAISE [None]
